FAERS Safety Report 5136682-9 (Version None)
Quarter: 2006Q4

REPORT INFORMATION
  Report Type: 
  Country: None (occurrence: None)
  Receive Date: 20061027
  Receipt Date: 20060905
  Transmission Date: 20070319
  Serious: Yes (Hospitalization)
  Sender: FDA-Public Use
  Company Number: FR-MERCK-0609FRA00009

PATIENT
  Age: 77 Year
  Sex: Male

DRUGS (4)
  1. COZAAR [Suspect]
     Indication: HYPERTENSION
     Route: 048
  2. AMLODIPINE BESYLATE [Concomitant]
     Indication: HYPERTENSION
     Route: 048
  3. CLARITHROMYCIN [Concomitant]
     Indication: LUNG DISORDER
     Route: 048
     Dates: start: 20060807, end: 20060811
  4. ASPIRIN AND DIPYRIDAMOLE [Concomitant]
     Route: 048

REACTIONS (4)
  - ANXIETY [None]
  - DEPRESSION [None]
  - HALLUCINATION [None]
  - NIGHTMARE [None]
